FAERS Safety Report 5223054-1 (Version None)
Quarter: 2007Q1

REPORT INFORMATION
  Report Type: 
  Country: None (occurrence: None)
  Receive Date: 20070129
  Receipt Date: 20070119
  Transmission Date: 20070707
  Serious: Yes (Hospitalization)
  Sender: FDA-Public Use
  Company Number: US-MERCK-0305USA01305

PATIENT
  Age: 67 Year
  Sex: Female

DRUGS (17)
  1. ZOCOR [Suspect]
     Route: 048
     Dates: end: 20010614
  2. CLARITIN [Concomitant]
     Route: 048
  3. COLESTID [Concomitant]
     Route: 048
  4. METOPROLOL TARTRATE [Concomitant]
     Route: 048
  5. PREVACID [Concomitant]
     Route: 048
  6. LOPID [Concomitant]
     Route: 048
  7. GLUCOPHAGE [Concomitant]
     Route: 048
  8. AVANDIA [Concomitant]
     Route: 048
     Dates: end: 20010101
  9. HYDRODIURIL [Concomitant]
     Route: 048
  10. HUMULIN L [Concomitant]
     Route: 058
  11. ASPIRIN [Concomitant]
     Route: 048
  12. ALTACE [Concomitant]
     Route: 065
  13. AZMACORT [Concomitant]
  14. VITAMIN E [Concomitant]
     Route: 065
  15. FOLIC ACID [Concomitant]
     Route: 065
  16. BUMEX [Concomitant]
     Route: 065
  17. DIGOXIN [Concomitant]
     Route: 065

REACTIONS (23)
  - ATRIOVENTRICULAR BLOCK FIRST DEGREE [None]
  - AZOTAEMIA [None]
  - BACK PAIN [None]
  - BRONCHIAL HYPERREACTIVITY [None]
  - COORDINATION ABNORMAL [None]
  - DIABETIC NEPHROPATHY [None]
  - DYSPEPSIA [None]
  - DYSPNOEA EXERTIONAL [None]
  - ELECTROCARDIOGRAM ST-T CHANGE [None]
  - GOITRE [None]
  - HEPATOCELLULAR DAMAGE [None]
  - HYPOKALAEMIA [None]
  - MITRAL VALVE INCOMPETENCE [None]
  - OEDEMA PERIPHERAL [None]
  - ORTHOPNOEA [None]
  - PULMONARY CONGESTION [None]
  - PULMONARY HYPERTENSION [None]
  - RENAL FAILURE ACUTE [None]
  - RHABDOMYOLYSIS [None]
  - RHINITIS ALLERGIC [None]
  - URINARY TRACT INFECTION [None]
  - VENTRICULAR HYPERTROPHY [None]
  - VERTIGO [None]
